FAERS Safety Report 15774358 (Version 1)
Quarter: 2018Q4

REPORT INFORMATION
  Report Type: Report from Study
  Country: IT (occurrence: IT)
  Receive Date: 20181229
  Receipt Date: 20181229
  Transmission Date: 20190205
  Serious: Yes (Life-Threatening, Hospitalization, Other)
  Sender: FDA-Public Use
  Company Number: IT-INDICUS PHARMA-000561

PATIENT
  Age: 74 Year
  Sex: Male

DRUGS (5)
  1. MIRTAZAPINE. [Concomitant]
     Active Substance: MIRTAZAPINE
  2. REPAGLINIDE. [Concomitant]
     Active Substance: REPAGLINIDE
  3. ROSUVASTATIN/ROSUVASTATIN CALCIUM [Concomitant]
  4. METFORMIN [Suspect]
     Active Substance: METFORMIN HYDROCHLORIDE
     Indication: TYPE 2 DIABETES MELLITUS
     Dosage: 850 MG T.I.D
  5. SERTRALINE [Concomitant]
     Active Substance: SERTRALINE HYDROCHLORIDE

REACTIONS (4)
  - Lactic acidosis [Unknown]
  - Intestinal ischaemia [Unknown]
  - Clostridium difficile infection [Unknown]
  - Acute kidney injury [Unknown]
